FAERS Safety Report 20839646 (Version 1)
Quarter: 2022Q2

REPORT INFORMATION
  Report Type: Spontaneous
  Country: AU (occurrence: AU)
  Receive Date: 20220517
  Receipt Date: 20220517
  Transmission Date: 20220721
  Serious: Yes (Other)
  Sender: FDA-Public Use
  Company Number: AU-EXELA PHARMA SCIENCES, LLC-2022EXL00015

PATIENT
  Age: 40 Year

DRUGS (1)
  1. SODIUM BICARBONATE [Suspect]
     Active Substance: SODIUM BICARBONATE
     Indication: Electrocardiogram QRS complex prolonged
     Dosage: 100 MMOL BOLUS OF 8.4%, REPEATED EVERY 3-5 MIN OVER 90 MIN, TOTAL 1600 MMOL
     Route: 065

REACTIONS (7)
  - Brain oedema [Not Recovered/Not Resolved]
  - Seizure [Not Recovered/Not Resolved]
  - Brain death [Not Recovered/Not Resolved]
  - Hypernatraemia [Not Recovered/Not Resolved]
  - Hypokalaemia [Not Recovered/Not Resolved]
  - Alkalosis [Not Recovered/Not Resolved]
  - Haemodynamic instability [Not Recovered/Not Resolved]
